FAERS Safety Report 17885354 (Version 1)
Quarter: 2020Q2

REPORT INFORMATION
  Report Type: Spontaneous
  Country: US (occurrence: US)
  Receive Date: 20200611
  Receipt Date: 20200611
  Transmission Date: 20200714
  Serious: Yes (Other)
  Sender: FDA-Public Use
  Company Number: None

PATIENT
  Age: 49 Year
  Sex: Female
  Weight: 91.35 kg

DRUGS (1)
  1. NP THYROID [Suspect]
     Active Substance: LEVOTHYROXINE\LIOTHYRONINE
     Indication: HYPOTHYROIDISM
     Route: 048
     Dates: start: 20180101, end: 20200606

REACTIONS (7)
  - Arrhythmia [None]
  - Weight decreased [None]
  - Hyperhidrosis [None]
  - Erythema [None]
  - Abdominal pain upper [None]
  - Constipation [None]
  - Agitation [None]

NARRATIVE: CASE EVENT DATE: 20200515
